FAERS Safety Report 13054794 (Version 3)
Quarter: 2017Q1

REPORT INFORMATION
  Report Type: Spontaneous
  Country: US (occurrence: US)
  Receive Date: 20161222
  Receipt Date: 20170310
  Transmission Date: 20170428
  Serious: Yes (Other)
  Sender: FDA-Public Use
  Company Number: US-SAOL THERAPEUTICS-2016SAO01277

PATIENT

DRUGS (3)
  1. LIORESAL [Suspect]
     Active Substance: BACLOFEN
     Indication: CEREBRAL PALSY
     Dosage: 100 ?G, \DAY
     Route: 037
     Dates: start: 201612
  2. LIORESAL [Suspect]
     Active Substance: BACLOFEN
     Dosage: 150 ?G, \DAY
     Dates: start: 20131213
  3. LIORESAL [Suspect]
     Active Substance: BACLOFEN
     Indication: MUSCLE SPASTICITY
     Dosage: 881.6 ?G, \DAY
     Route: 037

REACTIONS (2)
  - Complication associated with device [Recovered/Resolved]
  - Therapy non-responder [Unknown]
